FAERS Safety Report 18129060 (Version 21)
Quarter: 2023Q4

REPORT INFORMATION
  Report Type: Spontaneous
  Country: US (occurrence: US)
  Receive Date: 20200810
  Receipt Date: 20231213
  Transmission Date: 20240110
  Serious: No
  Sender: FDA-Public Use
  Company Number: US-PFIZER INC-2019343427

PATIENT
  Age: 66 Year
  Sex: Male
  Weight: 85 kg

DRUGS (8)
  1. CAVERJECT [Suspect]
     Active Substance: ALPROSTADIL
     Indication: Erectile dysfunction
     Dosage: UNK [QUANTITY FOR 90 DAYS: 4 VIALS IN 1 BOX, (SIX) 6 REFILLS]
  2. CAVERJECT [Suspect]
     Active Substance: ALPROSTADIL
     Indication: Musculoskeletal discomfort
     Dosage: 40 MG, AS NEEDED
  3. CAVERJECT [Suspect]
     Active Substance: ALPROSTADIL
     Dosage: 40 UG
  4. CAVERJECT [Suspect]
     Active Substance: ALPROSTADIL
     Dosage: UNK
  5. CAVERJECT [Suspect]
     Active Substance: ALPROSTADIL
     Dosage: UNK, (QUANTITY FOR 90 DAYS: 10 VIALS OF 6 WITH 3 REFILLS)
  6. CAVERJECT [Suspect]
     Active Substance: ALPROSTADIL
     Dosage: 1 UG, WEEKLY(3 TIMES A WEEK)
     Route: 017
  7. CAVERJECT [Suspect]
     Active Substance: ALPROSTADIL
     Dosage: 40 UG
  8. CAVERJECT [Suspect]
     Active Substance: ALPROSTADIL
     Dosage: 40 UG, AS NEEDED [INJECT ONCE DAILY PRN]

REACTIONS (3)
  - Body height decreased [Unknown]
  - Product prescribing error [Unknown]
  - Product dispensing error [Unknown]
